FAERS Safety Report 5719542-1 (Version None)
Quarter: 2008Q2

REPORT INFORMATION
  Report Type: 
  Country: None (occurrence: None)
  Receive Date: 20080423
  Receipt Date: 20070523
  Transmission Date: 20081010
  Serious: Yes (Hospitalization)
  Sender: FDA-Public Use
  Company Number: 236295

PATIENT
  Age: 74 Year
  Sex: Male

DRUGS (10)
  1. AVASTIN [Suspect]
     Indication: COLORECTAL CANCER METASTATIC
     Dosage: 1100 MG, INTRAVENOUS
     Route: 042
     Dates: start: 20070130
  2. FLUOROURACIL [Concomitant]
  3. METOPROLOL TARTRATE [Concomitant]
  4. HYDROCHLOROTHIAZIDE (HYDROCOROTHIAZIDE) [Concomitant]
  5. LIPITOR [Concomitant]
  6. LISINOPRIL [Concomitant]
  7. FLOMAX [Concomitant]
  8. PLAVIX [Concomitant]
  9. MIRALAX (POLYETHYLEE GLYCOL) [Concomitant]
  10. ASCORBIC ACID [Concomitant]

REACTIONS (1)
  - ACUTE MYOCARDIAL INFARCTION [None]
